FAERS Safety Report 8002654-X (Version None)
Quarter: 2011Q4

REPORT INFORMATION
  Report Type: 
  Country: None (occurrence: None)
  Receive Date: 20111220
  Receipt Date: 20111206
  Transmission Date: 20120403
  Serious: Yes (Hospitalization)
  Sender: FDA-Public Use
  Company Number: JP-2011-12935

PATIENT
  Age: 70 Year
  Sex: Male

DRUGS (16)
  1. GASTER D (FAMOTIDINE) TABLET [Concomitant]
  2. TANATRIL (IMIDAPRIL HYDROCHLORIDE) TABLET [Concomitant]
  3. DOXAZOSIN MESYLATE [Concomitant]
  4. LENDORMIN (BROTIZOLAM) TABLET [Concomitant]
  5. LASIX [Concomitant]
  6. MAGMITT (MAGNESIUM OXIDE) TABLET [Concomitant]
  7. ADALAT CR (NIFEDIPINE) TABLET [Concomitant]
  8. JANUVIA [Concomitant]
  9. PLETAL [Suspect]
     Indication: ARTERIOSCLEROSIS OBLITERANS
     Dosage: 50 MG MILLIGRAM(S), BID, ORAL, 100 MG MILLIGRAM(S), BID, ORAL
     Route: 048
     Dates: start: 20110819, end: 20110901
  10. PLETAL [Suspect]
     Indication: ARTERIOSCLEROSIS OBLITERANS
     Dosage: 50 MG MILLIGRAM(S), BID, ORAL, 100 MG MILLIGRAM(S), BID, ORAL
     Route: 048
     Dates: start: 20110721, end: 20110818
  11. PROCYLIN (BERAPROST SODIUM) TABLET [Concomitant]
  12. MEXITIL [Concomitant]
  13. ANPLAG (SARPOGRELATE HYDROCHLORIDE) TABLET [Concomitant]
  14. NOVORAPID (INSULIN ASPART) INJECTION [Concomitant]
  15. MICARDIS [Concomitant]
  16. ZETIA (EZETIMIBE) TABLET [Concomitant]

REACTIONS (1)
  - RENAL FAILURE ACUTE [None]
